FAERS Safety Report 4998553-8 (Version None)
Quarter: 2006Q2

REPORT INFORMATION
  Report Type: 
  Country: None (occurrence: None)
  Receive Date: 20060508
  Receipt Date: 20060426
  Transmission Date: 20061013
  Serious: Yes (Other)
  Sender: FDA-Public Use
  Company Number: 2006057746

PATIENT
  Age: 60 Year
  Sex: Female

DRUGS (4)
  1. BENADRYL [Suspect]
     Indication: ANTIALLERGIC THERAPY
     Dosage: (AS NECESSARY), INTRAVENOUS
     Route: 042
     Dates: start: 20060419, end: 20060419
  2. HERCEPTIN [Suspect]
     Indication: BREAST CANCER
     Dosage: INTRAVENOUS
     Route: 042
  3. ANASTROZOLE [Concomitant]
  4. ANTI-ASTHMATICS                 (ANTI-ASTHMATICS) [Concomitant]

REACTIONS (9)
  - ANXIETY [None]
  - COMMUNICATION DISORDER [None]
  - ERYTHEMA [None]
  - FEELING ABNORMAL [None]
  - FEELING COLD [None]
  - LETHARGY [None]
  - MOVEMENT DISORDER [None]
  - SPEECH DISORDER [None]
  - TREMOR [None]
